FAERS Safety Report 9769685 (Version 1)
Quarter: 2013Q4

REPORT INFORMATION
  Report Type: Spontaneous
  Country: US (occurrence: US)
  Receive Date: 20131218
  Receipt Date: 20131218
  Transmission Date: 20140711
  Serious: No
  Sender: FDA-Public Use
  Company Number: US-VERTEX PHARMACEUTICALS INC-AE-2011-000412

PATIENT
  Age: 51 Year
  Sex: Female

DRUGS (8)
  1. INCIVEK [Suspect]
     Indication: HEPATITIS C
     Route: 048
     Dates: start: 20110628
  2. PEGASYS [Concomitant]
     Indication: HEPATITIS C
     Dates: start: 20110701
  3. RIBASPHERE [Concomitant]
     Indication: HEPATITIS C
     Dates: start: 20110628
  4. METFORMIN [Concomitant]
     Dates: start: 2009
  5. LISINOPRIL [Concomitant]
     Dates: start: 2009
  6. ATENOLOL [Concomitant]
  7. HYDROCHLOROTHIAZIDE [Concomitant]
  8. ELIDEL [Concomitant]
     Indication: RASH

REACTIONS (7)
  - Asthenia [Unknown]
  - Decreased appetite [Unknown]
  - Nausea [Unknown]
  - Dysgeusia [Unknown]
  - Rash macular [Unknown]
  - Anal pruritus [Unknown]
  - Fatigue [Unknown]
